FAERS Safety Report 21788524 (Version 2)
Quarter: 2023Q1

REPORT INFORMATION
  Report Type: Spontaneous
  Country: US (occurrence: US)
  Receive Date: 20221228
  Receipt Date: 20230110
  Transmission Date: 20230418
  Serious: No
  Sender: FDA-Public Use
  Company Number: US-IDORSIA-002535-2022-US

PATIENT
  Sex: Male

DRUGS (10)
  1. QUVIVIQ [Suspect]
     Active Substance: DARIDOREXANT
     Indication: Insomnia
     Dosage: 50 MG, QD
     Route: 065
     Dates: start: 20221201, end: 20221215
  2. XARELTO [Concomitant]
     Active Substance: RIVAROXABAN
     Dosage: UNK, QD
  3. LOSARTAN [Concomitant]
     Active Substance: LOSARTAN
     Dosage: UNK, QD
  4. METOPROLOL [Concomitant]
     Active Substance: METOPROLOL
     Dosage: UNK, QD
  5. FUROSEMIDE [Concomitant]
     Active Substance: FUROSEMIDE
     Dosage: UNK, QD
  6. BUPROPION [Concomitant]
     Active Substance: BUPROPION
     Dosage: UNK, QD
  7. ATORVASTATIN [Concomitant]
     Active Substance: ATORVASTATIN
     Dosage: UNK, QD
  8. GABAPENTIN [Concomitant]
     Active Substance: GABAPENTIN
     Dosage: UNK, QD
  9. PRAXOL [Concomitant]
     Dosage: UNK, QD
  10. MIRABEGRON [Concomitant]
     Active Substance: MIRABEGRON
     Dosage: UNK, QD

REACTIONS (2)
  - Tremor [Recovered/Resolved]
  - Musculoskeletal discomfort [Recovered/Resolved]
